FAERS Safety Report 4822818-3 (Version None)
Quarter: 2005Q4

REPORT INFORMATION
  Report Type: 
  Country: None (occurrence: None)
  Receive Date: 20051104
  Receipt Date: 20051024
  Transmission Date: 20060501
  Serious: Yes (Hospitalization)
  Sender: FDA-Public Use
  Company Number: 2005146238

PATIENT
  Age: 35 Year
  Sex: Female

DRUGS (2)
  1. DEPO-MEDROL [Suspect]
     Indication: MUSCLE INJURY
     Dosage: (80 MG), INTRAMUSCULAR
     Route: 030
     Dates: start: 20030115
  2. MARCAINE [Suspect]
     Indication: MUSCLE INJURY
     Dosage: INTRAMUSCULAR
     Route: 030
     Dates: start: 20030115

REACTIONS (5)
  - ANGIOPATHY [None]
  - BLOOD CHOLESTEROL INCREASED [None]
  - BLOOD TRIGLYCERIDES INCREASED [None]
  - BONE GRAFT [None]
  - NECROSIS [None]
